FAERS Safety Report 7420604-1 (Version None)
Quarter: 2011Q2

REPORT INFORMATION
  Report Type: 
  Country: None (occurrence: None)
  Receive Date: 20110418
  Receipt Date: 20110406
  Transmission Date: 20111010
  Serious: Yes (Other)
  Sender: FDA-Public Use
  Company Number: US-ROCHE-467349

PATIENT
  Sex: Female
  Weight: 71.7 kg

DRUGS (3)
  1. CONTRACEPTIVE DRUG NOS [Concomitant]
  2. TRIAMCINOLON OINTMENT [Concomitant]
     Indication: XEROSIS
     Route: 061
     Dates: start: 19980407
  3. ACCUTANE [Suspect]
     Route: 048
     Dates: start: 19980307, end: 19980521

REACTIONS (10)
  - DEPRESSION [None]
  - METAPLASIA [None]
  - IRRITABLE BOWEL SYNDROME [None]
  - INFLAMMATORY BOWEL DISEASE [None]
  - COLONIC POLYP [None]
  - COLITIS ULCERATIVE [None]
  - PAPILLOMA VIRAL INFECTION [None]
  - COLITIS [None]
  - CERVICAL DYSPLASIA [None]
  - PANIC DISORDER [None]
